FAERS Safety Report 9853861 (Version 1)
Quarter: 2014Q1

REPORT INFORMATION
  Report Type: Spontaneous
  Country: US (occurrence: US)
  Receive Date: 20140129
  Receipt Date: 20140129
  Transmission Date: 20141002
  Serious: No
  Sender: FDA-Public Use
  Company Number: US-ALEXION-A201400133

PATIENT
  Sex: 0

DRUGS (2)
  1. SOLIRIS 300MG [Suspect]
     Indication: PAROXYSMAL NOCTURNAL HAEMOGLOBINURIA
     Dosage: 1200 MG, Q2W
     Route: 042
     Dates: start: 201212
  2. ARIXTRA [Concomitant]
     Dosage: 7.5 MG, QD
     Route: 065
     Dates: start: 2010

REACTIONS (2)
  - Pain [Not Recovered/Not Resolved]
  - Haemolysis [Not Recovered/Not Resolved]
